FAERS Safety Report 24799860 (Version 1)
Quarter: 2025Q1

REPORT INFORMATION
  Report Type: Other
  Country: RS (occurrence: RS)
  Receive Date: 20250102
  Receipt Date: 20250102
  Transmission Date: 20250409
  Serious: Yes (Hospitalization, Other)
  Sender: NUVO PHARMACEUTICALS
  Company Number: RS-Nuvo Pharmaceuticals Inc-2168200

PATIENT
  Age: 68 Year
  Sex: Female

DRUGS (5)
  1. DIAZEPAM [Suspect]
     Active Substance: DIAZEPAM
     Indication: Product used for unknown indication
  2. VALPROIC ACID [Suspect]
     Active Substance: VALPROIC ACID
  3. ENALAPRIL MALEATE [Suspect]
     Active Substance: ENALAPRIL MALEATE
  4. LORAZEPAM [Suspect]
     Active Substance: LORAZEPAM
  5. BROMAZEPAM [Suspect]
     Active Substance: BROMAZEPAM

REACTIONS (7)
  - Pneumonia [Unknown]
  - Intentional overdose [Unknown]
  - Mental status changes [Recovered/Resolved]
  - Pupillary reflex impaired [Recovered/Resolved]
  - Miosis [Recovered/Resolved]
  - Unresponsive to stimuli [Recovered/Resolved]
  - Coma [Recovered/Resolved]
